FAERS Safety Report 7921514-3 (Version None)
Quarter: 2011Q4

REPORT INFORMATION
  Report Type: 
  Country: None (occurrence: None)
  Receive Date: 20111117
  Receipt Date: 20110617
  Transmission Date: 20120403
  Serious: No
  Sender: FDA-Public Use
  Company Number: US-MYLANLABS-2011S1010705

PATIENT
  Age: 64 Year
  Sex: Female

DRUGS (2)
  1. TRIAMTERENE AND HYDROCHLOROTHIAZIDE [Suspect]
     Dates: start: 20110516
  2. TRIAMTERENE AND HYDROCHLOROTHIAZIDE [Suspect]
     Indication: BLOOD PRESSURE INCREASED
     Dosage: 37.5/25MG
     Dates: start: 20110516

REACTIONS (2)
  - ABDOMINAL PAIN UPPER [None]
  - REACTION TO DRUG EXCIPIENTS [None]
